FAERS Safety Report 7990293-6 (Version None)
Quarter: 2011Q4

REPORT INFORMATION
  Report Type: 
  Country: None (occurrence: None)
  Receive Date: 20111219
  Receipt Date: 20101229
  Transmission Date: 20120403
  Serious: No
  Sender: FDA-Public Use
  Company Number: US-ASTRAZENECA-2010SE61353

PATIENT
  Age: 45 Year
  Sex: Male
  Weight: 106.6 kg

DRUGS (9)
  1. CRESTOR [Suspect]
     Indication: HYPERCHOLESTEROLAEMIA
     Route: 048
  2. PLAVIX [Concomitant]
     Indication: CARDIAC DISORDER
  3. TRILIPIX [Concomitant]
  4. METFORMIN HCL [Concomitant]
     Indication: DIABETES MELLITUS
  5. CARVEDIILOL [Concomitant]
     Indication: CARDIAC DISORDER
  6. ASPIRIN [Concomitant]
     Indication: CARDIAC DISORDER
  7. LISINOPRIL [Concomitant]
     Indication: HYPERTENSION
  8. GLYPESIDE [Concomitant]
     Indication: DIABETES MELLITUS
  9. VICODA [Concomitant]
     Indication: DIABETES MELLITUS

REACTIONS (1)
  - BLOOD GLUCOSE INCREASED [None]
